FAERS Safety Report 5457561-3 (Version None)
Quarter: 2007Q3

REPORT INFORMATION
  Report Type: 
  Country: None (occurrence: None)
  Receive Date: 20070918
  Receipt Date: 20070906
  Transmission Date: 20080115
  Serious: Yes (Hospitalization, Other)
  Sender: FDA-Public Use
  Company Number: FR-PFIZER INC-2007074152

PATIENT
  Age: 45 Year
  Sex: Female

DRUGS (1)
  1. SUTENT [Suspect]
     Route: 048

REACTIONS (10)
  - AGEUSIA [None]
  - ANAEMIA [None]
  - DIARRHOEA [None]
  - DRY EYE [None]
  - DYSPHAGIA [None]
  - HAEMOGLOBIN DECREASED [None]
  - METRORRHAGIA [None]
  - SKIN DISCOLOURATION [None]
  - TINNITUS [None]
  - TONGUE DISORDER [None]
